FAERS Safety Report 12854281 (Version 3)
Quarter: 2016Q4

REPORT INFORMATION
  Report Type: Report from Study
  Country: CA (occurrence: CA)
  Receive Date: 20161017
  Receipt Date: 20161025
  Transmission Date: 20170207
  Serious: Yes (Hospitalization, Other)
  Sender: FDA-Public Use
  Company Number: CA-JNJFOC-20160712802

PATIENT
  Age: 72 Year
  Sex: Female

DRUGS (1)
  1. STELARA [Suspect]
     Active Substance: USTEKINUMAB
     Indication: RHEUMATOID ARTHRITIS
     Route: 058
     Dates: start: 20160105

REACTIONS (7)
  - Muscular weakness [Unknown]
  - Product use issue [Unknown]
  - Erythema [Unknown]
  - Rheumatoid arthritis [Unknown]
  - Off label use [Unknown]
  - Pruritus generalised [Unknown]
  - Productive cough [Unknown]

NARRATIVE: CASE EVENT DATE: 20160105
